FAERS Safety Report 6673147-7 (Version None)
Quarter: 2010Q2

REPORT INFORMATION
  Report Type: 
  Country: None (occurrence: None)
  Receive Date: 20100408
  Receipt Date: 20100401
  Transmission Date: 20101027
  Serious: Yes (Hospitalization, Other)
  Sender: FDA-Public Use
  Company Number: CHPA2010BR06241

PATIENT
  Age: 63 Year
  Sex: Male

DRUGS (1)
  1. BUFFERIN [Suspect]
     Dosage: 81MG, UNK

REACTIONS (3)
  - BRADYCARDIA [None]
  - HYPOTENSION [None]
  - STENT PLACEMENT [None]
